FAERS Safety Report 7235651-2 (Version None)
Quarter: 2011Q1

REPORT INFORMATION
  Report Type: 
  Country: None (occurrence: None)
  Receive Date: 20110120
  Receipt Date: 20101018
  Transmission Date: 20110831
  Serious: No
  Sender: FDA-Public Use
  Company Number: US-BAYER-201022882BCC

PATIENT
  Sex: Female

DRUGS (1)
  1. ALEVE [Suspect]
     Indication: STRESS FRACTURE
     Dosage: 440 MG, BID, BOTTLE COUNT 100S
     Route: 048
     Dates: start: 20100101

REACTIONS (1)
  - NO ADVERSE EVENT [None]
